FAERS Safety Report 5406685-5 (Version None)
Quarter: 2007Q3

REPORT INFORMATION
  Report Type: 
  Country: None (occurrence: None)
  Receive Date: 20070803
  Receipt Date: 20070803
  Transmission Date: 20080115
  Serious: Yes (Other)
  Sender: FDA-Public Use
  Company Number: None

PATIENT
  Age: 5 Month
  Sex: Male
  Weight: 8.6183 kg

DRUGS (1)
  1. ALBUTEROL [Suspect]
     Indication: WHEEZING
     Dosage: 90MCG/ACT AEROSOL SOL Q 4 HOURS PRN NEB
     Dates: start: 20070221

REACTIONS (3)
  - CONDITION AGGRAVATED [None]
  - DYSPNOEA [None]
  - ERYTHEMA [None]
